FAERS Safety Report 10917522 (Version 1)
Quarter: 2015Q1

REPORT INFORMATION
  Report Type: Spontaneous
  Country: DE (occurrence: None)
  Receive Date: 20150311
  Receipt Date: 20150311
  Transmission Date: 20150721
  Serious: Yes (Other)
  Sender: FDA-Public Use
  Company Number: FK201501067

PATIENT
  Age: 69 Year
  Sex: Female

DRUGS (4)
  1. IRINOTECAN (IRINOTECAN) [Suspect]
     Active Substance: IRINOTECAN
     Indication: ADENOCARCINOMA PANCREAS
     Dosage: CYCLICAL
     Dates: start: 201402, end: 201404
  2. OXALIPLATIN (OXALIPLATIN) [Suspect]
     Active Substance: OXALIPLATIN
     Indication: ADENOCARCINOMA PANCREAS
     Dosage: CYCLICAL
     Dates: start: 201102, end: 201404
  3. LEUCOVORIN CALCIUM (LEUCOVORIN CALCIUM) [Suspect]
     Active Substance: LEUCOVORIN CALCIUM
     Indication: ADENOCARCINOMA PANCREAS
     Dosage: CYCLICAL
     Dates: start: 201102, end: 201404
  4. FLUOROURACIL (FLUOROURACIL) [Suspect]
     Active Substance: FLUOROURACIL
     Indication: ADENOCARCINOMA PANCREAS
     Dosage: CYCLICAL
     Dates: start: 201102, end: 201404

REACTIONS (2)
  - Neutropenia [None]
  - Mucosal inflammation [None]
